FAERS Safety Report 22075385 (Version 1)
Quarter: 2023Q1

REPORT INFORMATION
  Report Type: Spontaneous
  Country: US (occurrence: US)
  Receive Date: 20230308
  Receipt Date: 20230308
  Transmission Date: 20230417
  Serious: No
  Sender: FDA-Public Use
  Company Number: US-BRISTOL-MYERS SQUIBB COMPANY-2023-033731

PATIENT
  Age: 77 Year
  Sex: Male
  Weight: 71.67 kg

DRUGS (1)
  1. ONUREG [Suspect]
     Active Substance: AZACITIDINE
     Indication: Acute myeloid leukaemia
     Dosage: FREQUENCY: DAILY 10 OF 28D
     Route: 048
     Dates: end: 20230306

REACTIONS (2)
  - Full blood count decreased [Unknown]
  - Off label use [Unknown]
